FAERS Safety Report 20988341 (Version 4)
Quarter: 2024Q1

REPORT INFORMATION
  Report Type: Spontaneous
  Country: VE (occurrence: VE)
  Receive Date: 20220621
  Receipt Date: 20240326
  Transmission Date: 20240409
  Serious: Yes (Hospitalization, Other)
  Sender: FDA-Public Use
  Company Number: VE-NOVARTISPH-NVSC2022VE141450

PATIENT
  Sex: Female

DRUGS (1)
  1. GLIVEC [Suspect]
     Active Substance: IMATINIB MESYLATE
     Indication: Chronic myeloid leukaemia
     Dosage: 400 MG (4 X 100 MG)
     Route: 065

REACTIONS (7)
  - Perineal abscess [Unknown]
  - Pyrexia [Unknown]
  - Haemoglobin decreased [Unknown]
  - Vomiting [Unknown]
  - Infection reactivation [Unknown]
  - Haemorrhoids [Unknown]
  - Bartholinitis [Unknown]
